FAERS Safety Report 7766136-2 (Version None)
Quarter: 2011Q3

REPORT INFORMATION
  Report Type: 
  Country: None (occurrence: None)
  Receive Date: 20110921
  Receipt Date: 20110909
  Transmission Date: 20111222
  Serious: Yes (Hospitalization)
  Sender: FDA-Public Use
  Company Number: GB-GENENTECH-319808

PATIENT
  Age: 8 Year
  Sex: Male
  Weight: 25.4 kg

DRUGS (10)
  1. DEFLAZACORT [Concomitant]
     Indication: RHINITIS
  2. SINGULAIR [Concomitant]
     Indication: ASTHMA
     Dosage: 5 MG, QD
  3. SINGULAIR [Concomitant]
     Indication: RHINITIS
  4. RYNACROM [Concomitant]
     Indication: RHINITIS
  5. SYMBICORT [Concomitant]
     Indication: ASTHMA
     Dosage: 2 PUFF, BID
  6. DEFLAZACORT [Concomitant]
     Indication: ASTHMA
     Dosage: 6 MG, QD
  7. CETIRIZINE HCL [Concomitant]
     Indication: RHINITIS
  8. XOLAIR [Suspect]
     Indication: ASTHMA
     Dosage: 150 MG, 1/MONTH
     Route: 058
     Dates: start: 20110413
  9. CETIRIZINE HCL [Concomitant]
     Indication: ASTHMA
     Dosage: 10 MG, QD
  10. RYNACROM [Concomitant]
     Indication: ASTHMA
     Dosage: UNK

REACTIONS (2)
  - ABDOMINAL PAIN [None]
  - GASTRITIS [None]
